FAERS Safety Report 6958802-3 (Version None)
Quarter: 2010Q3

REPORT INFORMATION
  Report Type: 
  Country: None (occurrence: None)
  Receive Date: 20100831
  Receipt Date: 20100825
  Transmission Date: 20110219
  Serious: Yes (Life-Threatening, Other)
  Sender: FDA-Public Use
  Company Number: PHHY2010CA56812

PATIENT
  Sex: Male

DRUGS (1)
  1. RITALIN [Suspect]
     Indication: ATTENTION DEFICIT/HYPERACTIVITY DISORDER
     Dosage: UNK
     Route: 048
     Dates: start: 19820101

REACTIONS (13)
  - ABNORMAL BEHAVIOUR [None]
  - BRAIN INJURY [None]
  - FOAMING AT MOUTH [None]
  - INTENTIONAL SELF-INJURY [None]
  - OBSESSIVE-COMPULSIVE DISORDER [None]
  - PSYCHOMOTOR HYPERACTIVITY [None]
  - SOMNAMBULISM [None]
  - SUICIDAL IDEATION [None]
  - TIC [None]
  - TINNITUS [None]
  - TOURETTE'S DISORDER [None]
  - URINARY INCONTINENCE [None]
  - VISUAL IMPAIRMENT [None]
